FAERS Safety Report 23212901 (Version 2)
Quarter: 2023Q4

REPORT INFORMATION
  Report Type: Report from Study
  Country: US (occurrence: US)
  Receive Date: 20231121
  Receipt Date: 20231128
  Transmission Date: 20240110
  Serious: No
  Sender: FDA-Public Use
  Company Number: US-UCBSA-2023055069

PATIENT
  Age: 16 Year
  Sex: Female

DRUGS (2)
  1. FINTEPLA [Suspect]
     Active Substance: FENFLURAMINE
     Indication: Lennox-Gastaut syndrome
     Dosage: 4 MILLILITER, 2X/DAY (BID)
  2. FINTEPLA [Suspect]
     Active Substance: FENFLURAMINE
     Dosage: 0.42 MG/KG/DAY AND 17.6 MG/DAY
     Dates: start: 202209

REACTIONS (2)
  - Echocardiogram abnormal [Not Recovered/Not Resolved]
  - Coronary artery dilatation [Unknown]

NARRATIVE: CASE EVENT DATE: 20230303
